FAERS Safety Report 25199206 (Version 1)
Quarter: 2025Q2

REPORT INFORMATION
  Report Type: Report from Study
  Country: FR (occurrence: FR)
  Receive Date: 20250415
  Receipt Date: 20250415
  Transmission Date: 20250717
  Serious: Yes (Hospitalization, Other)
  Sender: Norvium Bioscience
  Company Number: FR-Norvium Bioscience LLC-080006

PATIENT
  Age: 41 Year
  Sex: Female

DRUGS (6)
  1. GABAPENTIN [Suspect]
     Active Substance: GABAPENTIN
     Indication: Drug use disorder
     Dosage: HIGH DOSES
  2. PREGABALIN [Suspect]
     Active Substance: PREGABALIN
     Indication: Fibromyalgia
  3. GABAPENTIN [Suspect]
     Active Substance: GABAPENTIN
     Indication: Drug use disorder
     Dosage: HIGH DOSES
  4. GABAPENTIN [Suspect]
     Active Substance: GABAPENTIN
     Indication: Drug use disorder
     Dosage: HIGH DOSES
  5. PREGABALIN [Suspect]
     Active Substance: PREGABALIN
     Indication: Fibromyalgia
  6. PREGABALIN [Suspect]
     Active Substance: PREGABALIN
     Indication: Fibromyalgia

REACTIONS (3)
  - Emotional distress [Unknown]
  - Drug dependence [Unknown]
  - Drug use disorder [Unknown]
